FAERS Safety Report 9023492 (Version 1)
Quarter: 2013Q1

REPORT INFORMATION
  Report Type: Spontaneous
  Country: US (occurrence: US)
  Receive Date: 20130121
  Receipt Date: 20130121
  Transmission Date: 20140127
  Serious: No
  Sender: FDA-Public Use
  Company Number: US-OPTIMER PHARMACEUTICALS, INC.-20120140

PATIENT
  Age: 92 None
  Sex: Female
  Weight: 49.89 kg

DRUGS (3)
  1. DIFICID [Suspect]
     Indication: CLOSTRIDIUM DIFFICILE COLITIS
     Dosage: 200 MG, BID
     Route: 048
     Dates: start: 201209, end: 20121007
  2. ALLOPURINOL [Concomitant]
     Indication: RENAL FAILURE CHRONIC
     Dosage: UNK, QD
     Route: 048
  3. DARBEPOETIN ALFA [Concomitant]
     Indication: ANAEMIA
     Dosage: UNK
     Route: 058

REACTIONS (2)
  - Clostridium difficile colitis [Recovered/Resolved]
  - Disease recurrence [Recovered/Resolved]
